FAERS Safety Report 26149791 (Version 1)
Quarter: 2025Q4

REPORT INFORMATION
  Report Type: Spontaneous
  Country: US (occurrence: None)
  Receive Date: 20251211
  Receipt Date: 20251211
  Transmission Date: 20260118
  Serious: Yes (Death)
  Sender: FDA-CTU
  Company Number: None

PATIENT
  Age: 69 Year
  Sex: Female

DRUGS (9)
  1. ELTROMBOPAG [Suspect]
     Active Substance: ELTROMBOPAG
     Indication: Immune thrombocytopenia
     Dosage: 150MG DAILY ORAL
     Route: 048
     Dates: start: 20240707
  2. ACYCLOVIR 800 [Concomitant]
  3. ALLOPURINOL [Concomitant]
     Active Substance: ALLOPURINOL
  4. AMINOCAPROIC ACID 1000MG [Concomitant]
  5. AMLODIPINE [Concomitant]
     Active Substance: AMLODIPINE BESYLATE
  6. ATORVASTATIN [Concomitant]
     Active Substance: ATORVASTATIN
  7. BUPROPION [Concomitant]
     Active Substance: BUPROPION
  8. CYCLOSPORI NE 100MG [Concomitant]
  9. PANTOPRAZOLE40MG [Concomitant]

REACTIONS (3)
  - Urinary tract infection [None]
  - Renal impairment [None]
  - Platelet count decreased [None]

NARRATIVE: CASE EVENT DATE: 20251211
